FAERS Safety Report 17565566 (Version 2)
Quarter: 2020Q1

REPORT INFORMATION
  Report Type: Spontaneous
  Country: US (occurrence: US)
  Receive Date: 20200320
  Receipt Date: 20200324
  Transmission Date: 20200409
  Serious: Yes (Other)
  Sender: FDA-Public Use
  Company Number: US-PFIZER INC-2020121064

PATIENT
  Sex: Male

DRUGS (2)
  1. AVELUMAB [Concomitant]
     Active Substance: AVELUMAB
     Dosage: UNK
  2. INLYTA [Suspect]
     Active Substance: AXITINIB
     Dosage: 4 WEEK CYCLE, 60 PILLS

REACTIONS (1)
  - Hypertension [Unknown]
